FAERS Safety Report 5669732-1 (Version None)
Quarter: 2008Q1

REPORT INFORMATION
  Report Type: 
  Country: None (occurrence: None)
  Receive Date: 20080313
  Receipt Date: 20080313
  Transmission Date: 20080703
  Serious: Yes (Hospitalization)
  Sender: FDA-Public Use
  Company Number: None

PATIENT
  Sex: Male
  Weight: 98 kg

DRUGS (1)
  1. CISPLATIN [Suspect]
     Dosage: 392 MG
     Dates: end: 20080212

REACTIONS (2)
  - NAUSEA [None]
  - PAIN [None]
